FAERS Safety Report 14114197 (Version 1)
Quarter: 2017Q4

REPORT INFORMATION
  Report Type: Report from Study
  Country: NL (occurrence: NL)
  Receive Date: 20171023
  Receipt Date: 20171023
  Transmission Date: 20180321
  Serious: Yes (Hospitalization)
  Sender: FDA-Public Use
  Company Number: NL-ACCORD-060119

PATIENT
  Age: 75 Year
  Sex: Female

DRUGS (11)
  1. PHENPROCOUMON [Concomitant]
     Active Substance: PHENPROCOUMON
  2. FUROSEMIDE. [Concomitant]
     Active Substance: FUROSEMIDE
  3. RAMIPRIL. [Concomitant]
     Active Substance: RAMIPRIL
  4. DIGOXIN. [Concomitant]
     Active Substance: DIGOXIN
  5. BECLOMETASONE/FORMOTEROL [Concomitant]
  6. TIOTROPIUM/TIOTROPIUM BROMIDE [Concomitant]
  7. MONTELUKAST [Suspect]
     Active Substance: MONTELUKAST SODIUM
     Indication: ASTHMA
  8. CALCIUM CARBONATE. [Concomitant]
     Active Substance: CALCIUM CARBONATE
  9. OMEPRAZOLE. [Concomitant]
     Active Substance: OMEPRAZOLE
  10. CARVEDILOL/CARVEDILOL HYDROCHLODRIDE [Concomitant]
  11. ISOSORBIDE. [Concomitant]
     Active Substance: ISOSORBIDE

REACTIONS (1)
  - Eosinophilic granulomatosis with polyangiitis [Recovered/Resolved]
